FAERS Safety Report 17078880 (Version 2)
Quarter: 2019Q4

REPORT INFORMATION
  Report Type: Spontaneous
  Country: DE (occurrence: DE)
  Receive Date: 20191127
  Receipt Date: 20191223
  Transmission Date: 20200122
  Serious: Yes (Other)
  Sender: FDA-Public Use
  Company Number: DE-AMGEN-DEUSP2019194920

PATIENT
  Age: 55 Year
  Sex: Male

DRUGS (9)
  1. XGEVA [Suspect]
     Active Substance: DENOSUMAB
     Indication: METASTATIC NEOPLASM
  2. PEMBROLIZUMAB. [Concomitant]
     Active Substance: PEMBROLIZUMAB
     Dosage: 200 MILLIGRAM, Q3WK
     Dates: start: 201712
  3. PEMETREXED. [Concomitant]
     Active Substance: PEMETREXED
     Dosage: UNK
  4. PACLITAXEL. [Concomitant]
     Active Substance: PACLITAXEL
  5. LENVATINIB [Concomitant]
     Active Substance: LENVATINIB
     Dosage: UNK
  6. SORAFENIB [Concomitant]
     Active Substance: SORAFENIB
  7. PAZOPANIB [Concomitant]
     Active Substance: PAZOPANIB
  8. XGEVA [Suspect]
     Active Substance: DENOSUMAB
     Indication: POORLY DIFFERENTIATED THYROID CARCINOMA
     Dosage: UNK
     Route: 065
  9. LENVATINIB [Concomitant]
     Active Substance: LENVATINIB
     Dosage: (20-24 MG), QD

REACTIONS (1)
  - Poorly differentiated thyroid carcinoma [Recovering/Resolving]
